FAERS Safety Report 10778382 (Version 1)
Quarter: 2015Q1

REPORT INFORMATION
  Report Type: Spontaneous
  Country: US (occurrence: US)
  Receive Date: 20150209
  Receipt Date: 20150209
  Transmission Date: 20150721
  Serious: No
  Sender: FDA-Public Use
  Company Number: US-GILEAD-2015-0136251

PATIENT
  Age: 55 Year
  Sex: Female

DRUGS (11)
  1. ALDACTONE [Concomitant]
     Active Substance: SPIRONOLACTONE
  2. TYVASO [Suspect]
     Active Substance: TREPROSTINIL
     Indication: PULMONARY HYPERTENSION
     Route: 065
     Dates: start: 20140407, end: 20150101
  3. ADCIRCA [Concomitant]
     Active Substance: TADALAFIL
  4. XANAX [Concomitant]
     Active Substance: ALPRAZOLAM
  5. DIGOXIN. [Concomitant]
     Active Substance: DIGOXIN
  6. FERROUS SULFATE [Concomitant]
     Active Substance: FERROUS SULFATE\FERROUS SULFATE, DRIED
  7. LASIX [Concomitant]
     Active Substance: FUROSEMIDE
  8. ZOFRAN                             /00955302/ [Concomitant]
  9. LETAIRIS [Suspect]
     Active Substance: AMBRISENTAN
     Indication: PULMONARY HYPERTENSION
     Dosage: 10 MG, QD
     Route: 065
     Dates: start: 20111014
  10. XARELTO [Concomitant]
     Active Substance: RIVAROXABAN
  11. ALBUTEROL                          /00139501/ [Concomitant]
     Active Substance: ALBUTEROL

REACTIONS (1)
  - Pulmonary arterial pressure abnormal [Unknown]

NARRATIVE: CASE EVENT DATE: 20150101
